FAERS Safety Report 8842703 (Version 1)
Quarter: 2012Q4

REPORT INFORMATION
  Report Type: 
  Country: US (occurrence: US)
  Receive Date: 20121016
  Receipt Date: 20121016
  Transmission Date: 20130627
  Serious: No
  Sender: FDA-Public Use
  Company Number: US-VERTEX PHARMACEUTICAL INC.-2012-022106

PATIENT
  Sex: Female

DRUGS (6)
  1. KALYDECO [Suspect]
     Indication: CYSTIC FIBROSIS
     Dosage: 150 mg, bid
     Route: 048
     Dates: start: 201202
  2. PULMOZYME [Concomitant]
  3. TOBRAMYCIN [Concomitant]
  4. HYPERTONIC SALINE SOLUTION [Concomitant]
  5. ADVAIR [Concomitant]
  6. ATROVENT [Concomitant]

REACTIONS (1)
  - Drug administration error [Unknown]
